FAERS Safety Report 10032617 (Version 1)
Quarter: 2014Q1

REPORT INFORMATION
  Report Type: Spontaneous
  Country: US (occurrence: US)
  Receive Date: 20140324
  Receipt Date: 20140324
  Transmission Date: 20141002
  Serious: Yes (Death)
  Sender: FDA-Public Use
  Company Number: US-GLAXOSMITHKLINE-A1065432A

PATIENT
  Age: 74 Year
  Sex: Female

DRUGS (5)
  1. ARIXTRA [Suspect]
     Indication: THROMBOSIS
     Route: 065
     Dates: start: 201308
  2. FISH OIL [Concomitant]
  3. VITAMINS [Concomitant]
  4. DIABETES MEDICATION [Concomitant]
  5. BLOOD PRESSURE MEDICATION [Concomitant]

REACTIONS (1)
  - Malignant neoplasm progression [Fatal]
